FAERS Safety Report 13201715 (Version 1)
Quarter: 2017Q1

REPORT INFORMATION
  Report Type: Spontaneous
  Country: US (occurrence: US)
  Receive Date: 20170208
  Receipt Date: 20170208
  Transmission Date: 20170428
  Serious: No
  Sender: FDA-Public Use
  Company Number: US-AMGEN-USASP2016070078

PATIENT

DRUGS (1)
  1. NEULASTA [Suspect]
     Active Substance: PEGFILGRASTIM
     Indication: PRODUCT USED FOR UNKNOWN INDICATION
     Dosage: UNK UNK, UNK
     Route: 065

REACTIONS (8)
  - Pain [Unknown]
  - Fatigue [Unknown]
  - Inflammation [Unknown]
  - Fibromyalgia [Unknown]
  - Erythema [Unknown]
  - Alopecia [Unknown]
  - Thrombophlebitis superficial [Unknown]
  - Laboratory test abnormal [Unknown]
